FAERS Safety Report 13045736 (Version 1)
Quarter: 2016Q4

REPORT INFORMATION
  Report Type: Spontaneous
  Country: US (occurrence: US)
  Receive Date: 20161220
  Receipt Date: 20161220
  Transmission Date: 20170207
  Serious: Yes (Other)
  Sender: FDA-Public Use
  Company Number: US-SA-2016SA227354

PATIENT
  Age: 80 Year
  Sex: Female
  Weight: 81.6 kg

DRUGS (5)
  1. LEVEMIR [Suspect]
     Active Substance: INSULIN DETEMIR
     Indication: TYPE 2 DIABETES MELLITUS
     Dosage: .0024MOL/L DOSE:20 UNIT(S)
     Route: 058
     Dates: start: 2015
  2. FLEXPEN [Concomitant]
     Active Substance: UNSPECIFIED INGREDIENT
     Dates: start: 2015
  3. LANTUS [Suspect]
     Active Substance: INSULIN GLARGINE
     Indication: TYPE 2 DIABETES MELLITUS
     Dosage: DOSE:20 UNIT(S)
     Route: 058
     Dates: start: 2015
  4. HUMALOG [Suspect]
     Active Substance: INSULIN LISPRO
     Indication: TYPE 2 DIABETES MELLITUS
     Route: 058
     Dates: start: 2015
  5. NOVORAPID [Suspect]
     Active Substance: INSULIN ASPART
     Indication: TYPE 2 DIABETES MELLITUS
     Dosage: 100U/ML DOSE:5 UNIT(S)
     Route: 065
     Dates: start: 2015

REACTIONS (5)
  - Arterial occlusive disease [Recovered/Resolved]
  - Angina pectoris [Recovered/Resolved]
  - Atrial fibrillation [Unknown]
  - Depression [Unknown]
  - Coronary artery disease [Recovered/Resolved]

NARRATIVE: CASE EVENT DATE: 20160428
